FAERS Safety Report 5144423-4 (Version None)
Quarter: 2006Q4

REPORT INFORMATION
  Report Type: 
  Country: None (occurrence: None)
  Receive Date: 20061031
  Receipt Date: 20061018
  Transmission Date: 20070319
  Serious: Yes (Disabling, Other)
  Sender: FDA-Public Use
  Company Number: 2006127516

PATIENT
  Age: 42 Year
  Sex: Female
  Weight: 51.2565 kg

DRUGS (7)
  1. NEURONTIN [Suspect]
     Indication: ANXIETY
     Dosage: (300 MG)
     Dates: start: 20030101, end: 20060101
  2. NEURONTIN [Suspect]
     Indication: NEURALGIA
     Dosage: (300 MG)
     Dates: start: 20030101, end: 20060101
  3. DEPO-MEDROL W/LIDOCAINE [Suspect]
     Indication: INTERVERTEBRAL DISC PROTRUSION
     Dosage: EPIDURAL
     Route: 008
     Dates: start: 20040713
  4. LYRICA [Suspect]
     Indication: NEURALGIA
     Dosage: (100 MG, 1 D)
     Dates: start: 20060101
  5. CYCLOBENZAPRINE HCL [Concomitant]
  6. NEXIUM [Concomitant]
  7. IBUPROFEN [Concomitant]

REACTIONS (19)
  - ARTHRALGIA [None]
  - BLADDER DISORDER [None]
  - CERVICAL MYELOPATHY [None]
  - DRUG EFFECT DECREASED [None]
  - DYSKINESIA [None]
  - HYPERMOBILITY SYNDROME [None]
  - HYPOAESTHESIA [None]
  - JOINT CREPITATION [None]
  - MIGRAINE [None]
  - MUSCLE CONTRACTIONS INVOLUNTARY [None]
  - MUSCLE SPASTICITY [None]
  - PAIN [None]
  - PAIN IN EXTREMITY [None]
  - PARAESTHESIA [None]
  - PELVIC PAIN [None]
  - SOMNOLENCE [None]
  - SUICIDAL IDEATION [None]
  - URINARY RETENTION [None]
  - WEIGHT INCREASED [None]
